FAERS Safety Report 9365740 (Version 2)
Quarter: 2013Q3

REPORT INFORMATION
  Report Type: Spontaneous
  Country: US (occurrence: US)
  Receive Date: 20130625
  Receipt Date: 20130813
  Transmission Date: 20140515
  Serious: Yes (Life-Threatening, Other)
  Sender: FDA-Public Use
  Company Number: US-009507513-1306USA010112

PATIENT
  Age: 14 Year
  Sex: Male
  Weight: 112.93 kg

DRUGS (7)
  1. SINGULAIR [Suspect]
     Indication: ASTHMA
     Dosage: 10 MG, FREQUENCY UNKNOWN
     Route: 048
     Dates: start: 20130402, end: 20130618
  2. SINGULAIR [Suspect]
     Indication: HYPERSENSITIVITY
  3. SINGULAIR [Suspect]
     Indication: ASTHMA
     Dosage: 5 MG, FREQUENCY UNKNOWN
     Route: 048
     Dates: start: 200406
  4. SINGULAIR [Suspect]
     Indication: HYPERSENSITIVITY
  5. ZYRTEC [Concomitant]
     Indication: HYPERSENSITIVITY
     Dosage: UNK
     Route: 048
     Dates: start: 200402
  6. VENTOLIN HFA [Concomitant]
     Indication: ASTHMA
     Dosage: UNK, PRN
     Route: 055
  7. ASMANEX TWISTHALER [Concomitant]
     Indication: ASTHMA
     Dosage: 110, UNK
     Route: 055
     Dates: start: 20120411

REACTIONS (4)
  - Homicidal ideation [Not Recovered/Not Resolved]
  - Dissociative disorder [Not Recovered/Not Resolved]
  - Hallucination [Not Recovered/Not Resolved]
  - Overdose [Unknown]
